FAERS Safety Report 5364529-4 (Version None)
Quarter: 2007Q2

REPORT INFORMATION
  Report Type: 
  Country: None (occurrence: None)
  Receive Date: 20070530
  Receipt Date: 20070117
  Transmission Date: 20071010
  Serious: No
  Sender: FDA-Public Use
  Company Number: 2007PV028600

PATIENT
  Age: 52 Year
  Sex: Female
  Weight: 70.7611 kg

DRUGS (15)
  1. BYETTA [Suspect]
     Indication: DIABETES MELLITUS NON-INSULIN-DEPENDENT
     Dosage: 10 MCG;QPM;SC, 5 MCG;QAM;SC, 5 MCG;BID;SC, 10 MCG;BID;SC, 5 MCG;BID;SC
     Route: 058
     Dates: start: 20060101, end: 20060401
  2. BYETTA [Suspect]
     Indication: WEIGHT DECREASED
     Dosage: 10 MCG;QPM;SC, 5 MCG;QAM;SC, 5 MCG;BID;SC, 10 MCG;BID;SC, 5 MCG;BID;SC
     Route: 058
     Dates: start: 20060101, end: 20060401
  3. BYETTA [Suspect]
     Indication: DIABETES MELLITUS NON-INSULIN-DEPENDENT
     Dosage: 10 MCG;QPM;SC, 5 MCG;QAM;SC, 5 MCG;BID;SC, 10 MCG;BID;SC, 5 MCG;BID;SC
     Route: 058
     Dates: start: 20060401, end: 20061001
  4. BYETTA [Suspect]
     Indication: WEIGHT DECREASED
     Dosage: 10 MCG;QPM;SC, 5 MCG;QAM;SC, 5 MCG;BID;SC, 10 MCG;BID;SC, 5 MCG;BID;SC
     Route: 058
     Dates: start: 20060401, end: 20061001
  5. BYETTA [Suspect]
     Indication: DIABETES MELLITUS NON-INSULIN-DEPENDENT
     Dosage: 10 MCG;QPM;SC, 5 MCG;QAM;SC, 5 MCG;BID;SC, 10 MCG;BID;SC, 5 MCG;BID;SC
     Route: 058
     Dates: start: 20060101
  6. BYETTA [Suspect]
     Indication: WEIGHT DECREASED
     Dosage: 10 MCG;QPM;SC, 5 MCG;QAM;SC, 5 MCG;BID;SC, 10 MCG;BID;SC, 5 MCG;BID;SC
     Route: 058
     Dates: start: 20060101
  7. BYETTA [Suspect]
     Indication: DIABETES MELLITUS NON-INSULIN-DEPENDENT
     Dosage: 10 MCG;QPM;SC, 5 MCG;QAM;SC, 5 MCG;BID;SC, 10 MCG;BID;SC, 5 MCG;BID;SC
     Route: 058
     Dates: start: 20060101
  8. BYETTA [Suspect]
     Indication: WEIGHT DECREASED
     Dosage: 10 MCG;QPM;SC, 5 MCG;QAM;SC, 5 MCG;BID;SC, 10 MCG;BID;SC, 5 MCG;BID;SC
     Route: 058
     Dates: start: 20060101
  9. BYETTA [Suspect]
     Indication: DIABETES MELLITUS NON-INSULIN-DEPENDENT
     Dosage: 10 MCG;QPM;SC, 5 MCG;QAM;SC, 5 MCG;BID;SC, 10 MCG;BID;SC, 5 MCG;BID;SC
     Route: 058
     Dates: start: 20061001
  10. BYETTA [Suspect]
     Indication: WEIGHT DECREASED
     Dosage: 10 MCG;QPM;SC, 5 MCG;QAM;SC, 5 MCG;BID;SC, 10 MCG;BID;SC, 5 MCG;BID;SC
     Route: 058
     Dates: start: 20061001
  11. LANTUS [Concomitant]
  12. AMARYL [Concomitant]
  13. GLIPIZIDE [Concomitant]
  14. GLYBURIDE [Concomitant]
  15. PRILOSEC [Concomitant]

REACTIONS (8)
  - BLOOD GLUCOSE DECREASED [None]
  - BLOOD GLUCOSE INCREASED [None]
  - DIZZINESS [None]
  - GASTROOESOPHAGEAL REFLUX DISEASE [None]
  - INJECTION SITE DISCOMFORT [None]
  - NAUSEA [None]
  - VOMITING [None]
  - WEIGHT DECREASED [None]
